FAERS Safety Report 15178731 (Version 1)
Quarter: 2018Q3

REPORT INFORMATION
  Report Type: Spontaneous
  Country: DE (occurrence: DE)
  Receive Date: 20180722
  Receipt Date: 20180722
  Transmission Date: 20181010
  Serious: Yes (Hospitalization)
  Sender: FDA-Public Use
  Company Number: PHHY2017DE204223

PATIENT
  Age: 74 Year
  Sex: Female
  Weight: 61.8 kg

DRUGS (23)
  1. PACLITAXEL. [Suspect]
     Active Substance: PACLITAXEL
     Dosage: 282 MG, TID
     Route: 042
     Dates: start: 20161027
  2. CARBOPLATIN. [Suspect]
     Active Substance: CARBOPLATIN
     Indication: OVARIAN CANCER
     Dosage: 1 DF (580?600 MG), TID
     Route: 042
     Dates: start: 20161006
  3. BEVACIZUMAB. [Suspect]
     Active Substance: BEVACIZUMAB
     Indication: OVARIAN CANCER
     Dosage: 930 MG, UNK
     Route: 042
     Dates: start: 20161121
  4. BEVACIZUMAB. [Suspect]
     Active Substance: BEVACIZUMAB
     Dosage: 825 MG, TID
     Route: 042
     Dates: start: 20170215
  5. BEVACIZUMAB. [Suspect]
     Active Substance: BEVACIZUMAB
     Dosage: 750 MG, TID
     Route: 042
     Dates: start: 20170511
  6. CITALOPRAM [Concomitant]
     Active Substance: CITALOPRAM HYDROBROMIDE
     Indication: DEPRESSION
     Dosage: 20 MG, TID
     Route: 048
     Dates: start: 20160928
  7. PACLITAXEL. [Suspect]
     Active Substance: PACLITAXEL
     Dosage: 208 MG, TID
     Route: 042
     Dates: start: 20170215
  8. BEVACIZUMAB. [Suspect]
     Active Substance: BEVACIZUMAB
     Dosage: 925 MG, TID
     Route: 042
     Dates: start: 20161212
  9. PANTOZOL [Concomitant]
     Active Substance: PANTOPRAZOLE SODIUM
     Indication: PRODUCT USED FOR UNKNOWN INDICATION
     Dosage: 40 MG, TID
     Route: 048
  10. CARBOPLATIN. [Suspect]
     Active Substance: CARBOPLATIN
     Dosage: 600 MG, TID
     Route: 042
     Dates: start: 20161027
  11. CARBOPLATIN. [Suspect]
     Active Substance: CARBOPLATIN
     Dosage: 580 MG, TID
     Route: 042
     Dates: start: 20170105
  12. BEVACIZUMAB. [Suspect]
     Active Substance: BEVACIZUMAB
     Dosage: 840 MG, TID
     Route: 042
     Dates: start: 20170105
  13. PACLITAXEL. [Suspect]
     Active Substance: PACLITAXEL
     Dosage: 282 MG, TID
     Route: 042
     Dates: start: 20161212
  14. CARBOPLATIN. [Suspect]
     Active Substance: CARBOPLATIN
     Dosage: 580 MG, TID
     Route: 042
     Dates: start: 20170215
  15. AMLODIPIN [Concomitant]
     Active Substance: AMLODIPINE BESYLATE
     Indication: HYPERTENSION
     Dosage: 10 MG, QD
     Route: 048
  16. BISOPROLOL [Concomitant]
     Active Substance: BISOPROLOL
     Dosage: 5 MG, TID
     Route: 048
     Dates: start: 20170718
  17. DELIX (RAMIPRIL) [Concomitant]
     Active Substance: RAMIPRIL
     Indication: HYPERTENSION
     Dosage: 10 MG, TID
     Route: 048
  18. MIRTAZAPIN [Concomitant]
     Active Substance: MIRTAZAPINE
     Indication: DEPRESSION
     Dosage: 7.5 MG, QD
     Route: 048
     Dates: start: 20160928, end: 20161114
  19. BISOPROLOL [Concomitant]
     Active Substance: BISOPROLOL
     Indication: HYPERTENSION
     Dosage: 5 MG, TID
     Route: 048
  20. PACLITAXEL. [Suspect]
     Active Substance: PACLITAXEL
     Dosage: 209 MG, TID
     Route: 042
     Dates: start: 20170105, end: 20170105
  21. NOVAMINE [Concomitant]
     Active Substance: ALANINE\ARGININE\ASPARTIC ACID\GLUTAMIC ACID\GLYCINE\HISTIDINE\ISOLEUCINE\LEUCINE\LYSINE ACETATE\METHIONINE\PHENYLALANINE\PROLINE\SERINE\THREONINE\TRYPTOPHAN\TYROSINE\VALINE
     Indication: CYTOREDUCTIVE SURGERY
     Dosage: 4 G, UNK
     Route: 048
  22. CLEXANE [Concomitant]
     Active Substance: ENOXAPARIN SODIUM
     Indication: CYTOREDUCTIVE SURGERY
     Dosage: 40 IU, QD
     Route: 058
     Dates: start: 20161004, end: 20161014
  23. PACLITAXEL. [Suspect]
     Active Substance: PACLITAXEL
     Indication: OVARIAN CANCER
     Dosage: 1 DF (208?282 MG), TID
     Route: 042
     Dates: start: 20161006

REACTIONS (8)
  - Device related infection [Recovered/Resolved]
  - Device malfunction [Recovered/Resolved]
  - Neuropathy peripheral [Not Recovered/Not Resolved]
  - Leukopenia [Unknown]
  - Hypertension [Not Recovered/Not Resolved]
  - Thrombocytopenia [Recovering/Resolving]
  - Vomiting [Unknown]
  - Anaemia [Recovered/Resolved]

NARRATIVE: CASE EVENT DATE: 20161212
